FAERS Safety Report 16821250 (Version 1)
Quarter: 2019Q3

REPORT INFORMATION
  Report Type: Report from Study
  Country: IT (occurrence: IT)
  Receive Date: 20190918
  Receipt Date: 20190918
  Transmission Date: 20191005
  Serious: Yes (Hospitalization)
  Sender: FDA-Public Use
  Company Number: IT-TEVA-2019-IT-1107129

PATIENT
  Age: 88 Year
  Sex: Male

DRUGS (9)
  1. MOVICOL [Concomitant]
     Active Substance: POLYETHYLENE GLYCOL 3350\POTASSIUM CHLORIDE\SODIUM BICARBONATE\SODIUM CHLORIDE
     Indication: ASTRINGENT THERAPY
     Route: 048
  2. DOBETIN 20 MICROGRAMMI/ML GOCCE ORALI, SOLUZIONE [Concomitant]
     Indication: BLOOD CALCIUM DECREASED
     Route: 048
  3. QUETIAPINE FUMARATE. [Concomitant]
     Active Substance: QUETIAPINE FUMARATE
     Indication: BIPOLAR DISORDER
     Route: 065
  4. DIBASE 10,000 U.I./ML GOCCE ORL, SOLUTION [Concomitant]
     Indication: VITAMIN D
     Route: 048
     Dates: start: 20121212
  5. TELMISARTAN. [Suspect]
     Active Substance: TELMISARTAN
     Indication: HYPERTENSION
     Dosage: 1 DF
     Dates: start: 20161122, end: 20190719
  6. CYMBALTA [Concomitant]
     Active Substance: DULOXETINE HYDROCHLORIDE
     Indication: DEPRESSION
     Route: 048
  7. LYRICA [Concomitant]
     Active Substance: PREGABALIN
     Indication: PAIN
     Route: 048
  8. CLOPIDOGREL [Concomitant]
     Active Substance: CLOPIDOGREL BISULFATE
     Indication: PROPHYLAXIS
     Route: 048
  9. LANSOPRAZOLO ABC 15 MG CAPSULE RIGIDE GASTRORESISTENTI [Concomitant]
     Indication: PROPHYLAXIS
     Route: 048

REACTIONS (4)
  - Amnesia [Recovering/Resolving]
  - Fall [Recovering/Resolving]
  - Syncope [Recovering/Resolving]
  - Orthostatic hypotension [Recovering/Resolving]

NARRATIVE: CASE EVENT DATE: 20190719
